FAERS Safety Report 7778176-8 (Version None)
Quarter: 2011Q3

REPORT INFORMATION
  Report Type: 
  Country: None (occurrence: None)
  Receive Date: 20110926
  Receipt Date: 20110921
  Transmission Date: 20111222
  Serious: Yes (Disabling, Other)
  Sender: FDA-Public Use
  Company Number: DK-BRACCO-000055

PATIENT
  Sex: Female

DRUGS (11)
  1. MAGNEVIST [Suspect]
     Indication: NUCLEAR MAGNETIC RESONANCE IMAGING
  2. EMPERAL [Concomitant]
     Route: 048
  3. KININ [Concomitant]
  4. LACTULOSE [Concomitant]
  5. HALOPERIDOL [Concomitant]
  6. MAGNEVIST [Suspect]
     Indication: NUCLEAR MAGNETIC RESONANCE IMAGING BRAIN
     Route: 014
     Dates: start: 20060626, end: 20060626
  7. OMNISCAN [Suspect]
  8. METOCLOPRAMIDE [Concomitant]
  9. OMNISCAN [Suspect]
     Indication: SCAN WITH CONTRAST
     Route: 042
     Dates: start: 20020115, end: 20020115
  10. REMERON [Concomitant]
  11. CONTRAST MEDIA [Suspect]
     Indication: NUCLEAR MAGNETIC RESONANCE IMAGING
     Dates: start: 20020719, end: 20020719

REACTIONS (10)
  - SKIN HYPERTROPHY [None]
  - ABASIA [None]
  - OEDEMA PERIPHERAL [None]
  - ULCER [None]
  - PAIN OF SKIN [None]
  - NEPHROGENIC SYSTEMIC FIBROSIS [None]
  - MUSCLE ATROPHY [None]
  - ONYCHOMYCOSIS [None]
  - ARTHRALGIA [None]
  - ABDOMINAL PAIN [None]
